FAERS Safety Report 9206272 (Version 3)
Quarter: 2013Q4

REPORT INFORMATION
  Report Type: Report from Study
  Country: JP (occurrence: JP)
  Receive Date: 20130403
  Receipt Date: 20131119
  Transmission Date: 20140711
  Serious: Yes (Hospitalization)
  Sender: FDA-Public Use
  Company Number: PHHY2013JP031870

PATIENT
  Age: 24 Year
  Sex: Female

DRUGS (12)
  1. FTY 720 [Suspect]
     Indication: MULTIPLE SCLEROSIS RELAPSE
     Dosage: 0.5 MG, QD
     Route: 048
     Dates: start: 20120720, end: 20130402
  2. FTY 720 [Suspect]
     Dosage: 0.5 MG, QD
     Route: 048
     Dates: start: 20130419
  3. RINDERON [Concomitant]
     Dosage: 100 MG, UNK
     Route: 051
     Dates: start: 20110810, end: 20110812
  4. RINDERON [Concomitant]
     Dosage: 100 MG, UNK
     Route: 051
     Dates: start: 20120313, end: 20120316
  5. RINDERON [Concomitant]
     Dosage: 100 MG, UNK
     Route: 051
     Dates: start: 20120710, end: 20120712
  6. RINDERON [Concomitant]
     Dosage: 100 MG, UNK
     Route: 051
     Dates: start: 20130402, end: 20130404
  7. RINDERON [Concomitant]
     Dosage: 100 UNK, UNK
     Route: 051
     Dates: start: 20130412, end: 20130414
  8. EBRANTIL [Concomitant]
     Dosage: 15 MG, UNK
     Route: 048
     Dates: start: 20120717, end: 20120905
  9. BESACOLIN [Concomitant]
     Dosage: 30 MG, UNK
     Route: 048
     Dates: start: 20120823, end: 20120905
  10. VESICARE [Concomitant]
     Dosage: 2.5 MG, UNK
     Route: 048
     Dates: start: 20120906
  11. TAKEPRON [Concomitant]
     Dosage: 15 MG, UNK
     Route: 048
     Dates: start: 20130402
  12. PREDONINE [Concomitant]
     Dosage: 50 MG, UNK
     Dates: start: 20130405

REACTIONS (1)
  - Multiple sclerosis relapse [Recovered/Resolved]
